FAERS Safety Report 6144249-9 (Version None)
Quarter: 2009Q2

REPORT INFORMATION
  Report Type: 
  Country: None (occurrence: None)
  Receive Date: 20090406
  Receipt Date: 20090406
  Transmission Date: 20091009
  Serious: Yes (Hospitalization, Other)
  Sender: FDA-Public Use
  Company Number: PHHO2002IT08237

PATIENT
  Sex: Female
  Weight: 58 kg

DRUGS (1)
  1. CGS 20267 T30748+ [Suspect]
     Indication: BREAST CANCER
     Dosage: 2.5 MG, QD
     Route: 048
     Dates: start: 20000929, end: 20020917

REACTIONS (3)
  - ENDOMETRIAL CANCER [None]
  - HYSTERECTOMY [None]
  - VAGINAL HAEMORRHAGE [None]
